FAERS Safety Report 13239708 (Version 6)
Quarter: 2017Q3

REPORT INFORMATION
  Report Type: Spontaneous
  Country: US (occurrence: US)
  Receive Date: 20170216
  Receipt Date: 20170829
  Transmission Date: 20171127
  Serious: Yes (Other)
  Sender: FDA-Public Use
  Company Number: US-PFIZER INC-2017057266

PATIENT
  Age: 56 Year
  Sex: Female

DRUGS (51)
  1. CHOLESTYRAMI [Concomitant]
     Dosage: UNK
  2. FOLIC ACID. [Concomitant]
     Active Substance: FOLIC ACID
     Dosage: UNK
  3. TRIAMTERENE. [Concomitant]
     Active Substance: TRIAMTERENE
     Dosage: UNK (37.5-25M)
  4. CYCLOBENZAPRINE HCL [Concomitant]
     Active Substance: CYCLOBENZAPRINE HYDROCHLORIDE
     Indication: MUSCLE SPASMS
     Dosage: UNK
  5. KLOR-CON M20 [Concomitant]
     Active Substance: POTASSIUM CHLORIDE
     Dosage: 20 MEQ, UNK (1-2 TABLET WITH FOOD Q AM WITH LASIX)
  6. CYANOCOBALAMIN. [Concomitant]
     Active Substance: CYANOCOBALAMIN
     Indication: MYALGIA
     Dosage: 1000 UG, 1X/DAY
  7. FISH OIL [Concomitant]
     Active Substance: FISH OIL
     Dosage: 2000 MG, 1X/DAY (2 CAPSULES ONCE A DAY)
  8. XELJANZ XR [Suspect]
     Active Substance: TOFACITINIB CITRATE
     Indication: RHEUMATOID ARTHRITIS
     Dosage: 11 MG, 1X/DAY
     Route: 048
     Dates: start: 20170619
  9. FIBER [Concomitant]
     Active Substance: PSYLLIUM HUSK
     Dosage: UNK
  10. LORATADINE. [Concomitant]
     Active Substance: LORATADINE
     Indication: HYPERSENSITIVITY
     Dosage: UNK
  11. PROBIOTIC [Concomitant]
     Active Substance: PROBIOTICS NOS
     Dosage: UNK, 1X/DAY (AS DIRECTED)
  12. SYNTHROID [Concomitant]
     Active Substance: LEVOTHYROXINE SODIUM
     Dosage: 112 UG, 1X/DAY (1 TABLET ONCE A DAY-BRAND NAME ONLY)
  13. SERTRALINE [Concomitant]
     Active Substance: SERTRALINE HYDROCHLORIDE
     Dosage: 100 MG, 1X/DAY
  14. ARIPIPRAZOLE. [Concomitant]
     Active Substance: ARIPIPRAZOLE
     Dosage: UNK
  15. SINGULAIR [Concomitant]
     Active Substance: MONTELUKAST SODIUM
     Dosage: 10 MG, UNK (ONE TABLET IN THE EVENING QHS)
  16. MORPHINE SULFATE. [Concomitant]
     Active Substance: MORPHINE SULFATE
     Indication: PAIN
  17. FIBER [Concomitant]
     Active Substance: PSYLLIUM HUSK
     Dosage: 2.6 G, 2X/DAY (5 CAPSULES WITH 8 OUNCES OF LIQUID)
  18. TRIAMTERENE. [Concomitant]
     Active Substance: TRIAMTERENE
     Dosage: UNK, 1X/DAY (37.5-25MG) (IN THE MORNING)
  19. VITAMIN D3 [Concomitant]
     Active Substance: CHOLECALCIFEROL
     Dosage: UNK
  20. METOPROLOL T [Concomitant]
     Dosage: UNK
  21. FAMOTIDINE. [Concomitant]
     Active Substance: FAMOTIDINE
     Dosage: 20 MG, 2X/DAY (1 TABLET TWICE DAILY TWICE A DAY)
     Route: 048
  22. DEPO-MEDROL [Concomitant]
     Active Substance: METHYLPREDNISOLONE ACETATE
     Dosage: 80 MG, UNK (ON LEFT GLUTEUS)
  23. FOLIC ACID. [Concomitant]
     Active Substance: FOLIC ACID
     Dosage: 1 MG, DAILY (TAKE 1 TABLET EVERY DAY FOR 90 DAYS)
     Route: 048
  24. FUROSEMIDE. [Concomitant]
     Active Substance: FUROSEMIDE
     Dosage: UNK
  25. ERGOCALCIFEROL. [Concomitant]
     Active Substance: ERGOCALCIFEROL
     Indication: VITAMIN D DEFICIENCY
     Dosage: 50000 IU, UNK (1 CAPSULE Q M W F)
  26. ALBUTEROL SULFATE. [Concomitant]
     Active Substance: ALBUTEROL SULFATE
     Indication: WHEEZING
     Dosage: UNK UNK, AS NEEDED (2 PUFFSAS NEEDED EVERY 6 HRS PRN)
  27. PPD DISPOSABLE [Concomitant]
     Active Substance: TUBERCULIN PURIFIED PROTEIN DERIVATIVE
     Dosage: 1.0 ML, UNK (ON LEFT LOWER FOREARM)
  28. TORADOL [Concomitant]
     Active Substance: KETOROLAC TROMETHAMINE
     Dosage: 30 MG, UNK (ON RIGHT GLUTEUS)
  29. POTASSIUM [Concomitant]
     Active Substance: POTASSIUM
     Dosage: UNK
  30. VITAMIN B12 [Concomitant]
     Active Substance: CYANOCOBALAMIN
     Dosage: UNK
  31. SYNTHROID [Concomitant]
     Active Substance: LEVOTHYROXINE SODIUM
     Dosage: UNK
  32. SYNTHROID [Concomitant]
     Active Substance: LEVOTHYROXINE SODIUM
     Dosage: 25 UG, UNK (ONE TABLET ON AN EMPTY STOMACH IN THE MORNING)
  33. CYCLOBENZAPRINE HCL [Concomitant]
     Active Substance: CYCLOBENZAPRINE HYDROCHLORIDE
     Dosage: 10 MG, AS NEEDED (1 TABLET 4 TIMES A DAY (QID) AS  NEEDED (PRN)
  34. HYDROXYCHLOR [Concomitant]
     Active Substance: HYDROXYCHLOROQUINE
     Dosage: UNK
  35. OTEZLA [Concomitant]
     Active Substance: APREMILAST
     Indication: PSORIATIC ARTHROPATHY
     Dosage: 30 MG, 2X/DAY
     Dates: start: 201602
  36. QUESTRAN [Concomitant]
     Active Substance: CHOLESTYRAMINE
     Dosage: UNK (4 GM PACKET 1 PACKET MIXED WITH WATER OR NON-CARBONATED DRINK ONCE A DAY)
  37. VITAMIN D [Concomitant]
     Active Substance: CHOLECALCIFEROL
     Indication: VITAMIN D DEFICIENCY
     Dosage: 5000 IU, 1X/DAY (CAPSULE 5 TABLETS)
  38. TRAMADOL HCL [Concomitant]
     Active Substance: TRAMADOL HYDROCHLORIDE
     Dosage: 200 MG, 1X/DAY
  39. BOTOX [Concomitant]
     Active Substance: ONABOTULINUMTOXINA
     Indication: TORTICOLLIS
     Dosage: 200 IU, UNK (AS DIRECTED Q 3 MONTHS)
  40. LORATADINE. [Concomitant]
     Active Substance: LORATADINE
     Dosage: 10 MG, DAILY
     Route: 048
  41. MONTELUKAST [Concomitant]
     Active Substance: MONTELUKAST SODIUM
     Dosage: UNK
  42. TURMERIC [Concomitant]
     Active Substance: HERBALS\TURMERIC
     Dosage: UNK
  43. SERTRALINE [Concomitant]
     Active Substance: SERTRALINE HYDROCHLORIDE
     Dosage: UNK
  44. PENNSAID [Concomitant]
     Active Substance: DICLOFENAC SODIUM
     Dosage: UNK UNK, 2X/DAY (2 APPLICATIONS TO AFFECTED AREA)
  45. MORPHINE SULFATE. [Concomitant]
     Active Substance: MORPHINE SULFATE
     Indication: RHEUMATOID ARTHRITIS
     Dosage: 15 MG, AS NEEDED (ONE TABLET, EVERY 8 HRS PRN PAIN, 30 DAYS)
     Route: 048
  46. XELJANZ XR [Suspect]
     Active Substance: TOFACITINIB CITRATE
     Indication: RHEUMATOID VASCULITIS
     Dosage: 11 MG, (1 TABLET), DAILY
     Route: 048
     Dates: start: 201610
  47. PROBIOTIC [Concomitant]
     Active Substance: PROBIOTICS NOS
     Dosage: UNK
  48. TURMERIC [Concomitant]
     Active Substance: HERBALS\TURMERIC
     Dosage: 500 MG, 1X/DAY
  49. VITAMIN D2 [Concomitant]
     Active Substance: ERGOCALCIFEROL
     Dosage: UNK
  50. LASIX [Concomitant]
     Active Substance: FUROSEMIDE
     Indication: OEDEMA
     Dosage: 40 MG, UNK (Q AM
  51. METOPROLOL TARTRATE. [Concomitant]
     Active Substance: METOPROLOL TARTRATE
     Dosage: 100 MG, 2X/DAY

REACTIONS (38)
  - Mean platelet volume decreased [Unknown]
  - Amnesia [Recovering/Resolving]
  - Rash [Unknown]
  - Dyspnoea exertional [Unknown]
  - Alanine aminotransferase increased [Unknown]
  - Electrophoresis protein [Unknown]
  - Dystonia [Unknown]
  - Carbon dioxide increased [Unknown]
  - Rhinorrhoea [Not Recovered/Not Resolved]
  - Oedema [Unknown]
  - Dry mouth [Unknown]
  - Headache [Unknown]
  - Trigger finger [Unknown]
  - Sciatica [Unknown]
  - Asthenia [Unknown]
  - Raynaud^s phenomenon [Unknown]
  - Paranasal sinus hypersecretion [Unknown]
  - Drug effect incomplete [Unknown]
  - Varicose vein [Unknown]
  - Sleep disorder [Unknown]
  - Peripheral venous disease [Unknown]
  - Hypoaesthesia [Unknown]
  - Blood albumin decreased [Unknown]
  - Osteoarthritis [Unknown]
  - Insomnia [Unknown]
  - Anxiety [Unknown]
  - Depression [Unknown]
  - Paraesthesia [Unknown]
  - Dry eye [Unknown]
  - Pain [Unknown]
  - Neck pain [Unknown]
  - Diabetes mellitus [Unknown]
  - Hand fracture [Unknown]
  - Condition aggravated [Unknown]
  - Night sweats [Unknown]
  - Weight decreased [Unknown]
  - Tenderness [Unknown]
  - Oedema peripheral [Unknown]
